FAERS Safety Report 11216279 (Version 3)
Quarter: 2015Q3

REPORT INFORMATION
  Report Type: Report from Study
  Country: JP (occurrence: JP)
  Receive Date: 20150624
  Receipt Date: 20150805
  Transmission Date: 20151125
  Serious: Yes (Life-Threatening, Hospitalization, Other)
  Sender: FDA-Public Use
  Company Number: JP-JNJFOC-20150616324

PATIENT
  Age: 14 Year
  Sex: Female
  Weight: 47.7 kg

DRUGS (184)
  1. INTRALIPOS [Suspect]
     Active Substance: SOYBEAN OIL
     Indication: MALNUTRITION
     Dosage: REGIMEN 1
     Route: 065
     Dates: start: 20130820, end: 20130822
  2. ALDACTONE A [Suspect]
     Active Substance: SPIRONOLACTONE
     Indication: RENAL IMPAIRMENT
     Route: 048
     Dates: start: 20130910, end: 20130930
  3. LASIX [Suspect]
     Active Substance: FUROSEMIDE
     Indication: RENAL IMPAIRMENT
     Route: 065
     Dates: start: 20130821, end: 20130825
  4. VFEND [Suspect]
     Active Substance: VORICONAZOLE
     Indication: PROPHYLAXIS
     Route: 065
     Dates: start: 20130828, end: 20130829
  5. ALBUMIN HUMAN [Suspect]
     Active Substance: ALBUMIN (HUMAN)
     Indication: CAPILLARY LEAK SYNDROME
     Route: 065
     Dates: start: 20130714, end: 20130715
  6. ANTHROBIN P [Suspect]
     Active Substance: ANTITHROMBIN III HUMAN
     Indication: ABNORMAL CLOTTING FACTOR
     Route: 065
     Dates: start: 20130715, end: 20130715
  7. ROPION [Suspect]
     Active Substance: FLURBIPROFEN AXETIL
     Indication: PROPHYLAXIS
     Route: 065
     Dates: start: 20130716, end: 20130717
  8. ROPION [Suspect]
     Active Substance: FLURBIPROFEN AXETIL
     Indication: ACUTE LYMPHOCYTIC LEUKAEMIA
     Route: 065
     Dates: start: 20130726, end: 20130729
  9. PROGRAF [Suspect]
     Active Substance: TACROLIMUS\TACROLIMUS ANHYDROUS
     Indication: PROPHYLAXIS
     Route: 048
     Dates: start: 20130714, end: 20130925
  10. TEICOPLANIN [Suspect]
     Active Substance: TEICOPLANIN
     Indication: PROPHYLAXIS
     Dosage: REGIMEN 1
     Route: 016
     Dates: start: 20130717, end: 20130719
  11. SOLU-MEDROL [Suspect]
     Active Substance: METHYLPREDNISOLONE SODIUM SUCCINATE
     Indication: GRAFT VERSUS HOST DISEASE
     Route: 065
     Dates: start: 20130731, end: 20130731
  12. SOLU-MEDROL [Suspect]
     Active Substance: METHYLPREDNISOLONE SODIUM SUCCINATE
     Indication: CAPILLARY LEAK SYNDROME
     Route: 065
     Dates: start: 20130729, end: 20130729
  13. BENAMBAX [Suspect]
     Active Substance: PENTAMIDINE
     Indication: PROPHYLAXIS
     Route: 065
     Dates: start: 20130928, end: 20131028
  14. DORMICUM [Suspect]
     Active Substance: MIDAZOLAM\MIDAZOLAM HYDROCHLORIDE
     Indication: ACUTE LYMPHOCYTIC LEUKAEMIA
     Route: 065
     Dates: start: 20130730, end: 20130807
  15. OXYCODONE HYDROCHLORIDE. [Suspect]
     Active Substance: OXYCODONE HYDROCHLORIDE
     Indication: NEUROPATHY PERIPHERAL
     Route: 065
     Dates: start: 20130714, end: 20130729
  16. CALONAL [Concomitant]
     Active Substance: ACETAMINOPHEN
     Indication: ACUTE LYMPHOCYTIC LEUKAEMIA
     Route: 048
     Dates: start: 20130808, end: 20130808
  17. PREDNISOLONE SODIUM SUCCINATE [Concomitant]
     Active Substance: PREDNISOLONE SODIUM SUCCINATE
     Indication: CAPILLARY LEAK SYNDROME
     Route: 065
     Dates: start: 20130814, end: 20130819
  18. FENTANYL. [Suspect]
     Active Substance: FENTANYL
     Indication: ACUTE LYMPHOCYTIC LEUKAEMIA
     Route: 065
     Dates: start: 20130730, end: 20130823
  19. ONDANSETRON [Suspect]
     Active Substance: ONDANSETRON
     Indication: PROPHYLAXIS
     Route: 065
     Dates: start: 20130720, end: 20130721
  20. PRECEDEX [Suspect]
     Active Substance: DEXMEDETOMIDINE HYDROCHLORIDE
     Indication: PROPHYLAXIS
     Route: 065
     Dates: start: 20130731, end: 20130801
  21. PRECEDEX [Suspect]
     Active Substance: DEXMEDETOMIDINE HYDROCHLORIDE
     Indication: ACUTE LYMPHOCYTIC LEUKAEMIA
     Route: 065
     Dates: start: 20130731, end: 20130801
  22. ROCURONIUM BROMIDE. [Suspect]
     Active Substance: ROCURONIUM BROMIDE
     Indication: PROPHYLAXIS
     Dosage: REGIMEN 1
     Route: 065
     Dates: start: 20130801, end: 20130801
  23. DROLEPTAN [Suspect]
     Active Substance: DROPERIDOL
     Indication: ACUTE LYMPHOCYTIC LEUKAEMIA
     Route: 065
     Dates: start: 20130808, end: 20130808
  24. METHOTREXATE [Suspect]
     Active Substance: METHOTREXATE
     Indication: PROPHYLAXIS
     Route: 065
     Dates: start: 20130716, end: 20130716
  25. ANTHROBIN P [Suspect]
     Active Substance: ANTITHROMBIN III HUMAN
     Indication: ABNORMAL CLOTTING FACTOR
     Route: 065
     Dates: start: 20130801, end: 20130803
  26. PANTHENOL [Suspect]
     Active Substance: PANTHENOL
     Indication: ILEUS PARALYTIC
     Route: 065
     Dates: start: 20130802, end: 20130906
  27. ROPION [Suspect]
     Active Substance: FLURBIPROFEN AXETIL
     Indication: PROPHYLAXIS
     Route: 065
     Dates: start: 20130808, end: 20130809
  28. ROPION [Suspect]
     Active Substance: FLURBIPROFEN AXETIL
     Indication: PROPHYLAXIS
     Route: 065
     Dates: start: 20130726, end: 20130729
  29. ADONA [Suspect]
     Active Substance: CARBAZOCHROME SODIUM SULFONATE
     Indication: ORAL DISORDER
     Dosage: REGIMEN 1
     Route: 065
     Dates: start: 20130720, end: 20130729
  30. KAYTWO N [Suspect]
     Active Substance: MENATETRENONE
     Indication: ABNORMAL CLOTTING FACTOR
     Route: 065
     Dates: start: 20130720, end: 20130720
  31. TEICOPLANIN [Suspect]
     Active Substance: TEICOPLANIN
     Indication: SEPSIS
     Route: 016
     Dates: end: 20130823
  32. FUNGUARD [Suspect]
     Active Substance: MICAFUNGIN SODIUM
     Indication: SEPSIS
     Route: 065
     Dates: start: 20130825, end: 20130828
  33. FUNGUARD [Suspect]
     Active Substance: MICAFUNGIN SODIUM
     Indication: SEPSIS
     Route: 065
     Dates: start: 20130714, end: 20130728
  34. GANCICLOVIR. [Concomitant]
     Active Substance: GANCICLOVIR
     Indication: CYTOMEGALOVIRUS VIRAEMIA
     Route: 065
     Dates: start: 20130810, end: 20130819
  35. ATARAX-P [Concomitant]
     Active Substance: HYDROXYZINE HYDROCHLORIDE
     Indication: ACUTE LYMPHOCYTIC LEUKAEMIA
     Route: 065
     Dates: start: 20130818, end: 20130818
  36. ATARAX-P [Concomitant]
     Active Substance: HYDROXYZINE HYDROCHLORIDE
     Indication: ACUTE LYMPHOCYTIC LEUKAEMIA
     Route: 065
     Dates: start: 20130826, end: 20130830
  37. PREDNISOLONE SODIUM SUCCINATE [Concomitant]
     Active Substance: PREDNISOLONE SODIUM SUCCINATE
     Indication: GRAFT VERSUS HOST DISEASE
     Route: 065
     Dates: start: 20130930, end: 20130930
  38. PREDNISOLONE SODIUM SUCCINATE [Concomitant]
     Active Substance: PREDNISOLONE SODIUM SUCCINATE
     Indication: GRAFT VERSUS HOST DISEASE
     Route: 065
     Dates: start: 20130920, end: 20130929
  39. PREDNISOLONE SODIUM SUCCINATE [Concomitant]
     Active Substance: PREDNISOLONE SODIUM SUCCINATE
     Indication: CAPILLARY LEAK SYNDROME
     Route: 065
     Dates: start: 20130919, end: 20130919
  40. PREDNISOLONE SODIUM SUCCINATE [Concomitant]
     Active Substance: PREDNISOLONE SODIUM SUCCINATE
     Indication: CAPILLARY LEAK SYNDROME
     Route: 065
     Dates: start: 20130930, end: 20130930
  41. HEPARIN SODIUM. [Suspect]
     Active Substance: HEPARIN SODIUM
     Indication: PROPHYLAXIS
     Dosage: REGIMEN 1
     Route: 065
     Dates: start: 20130730, end: 20130807
  42. PRECEDEX [Suspect]
     Active Substance: DEXMEDETOMIDINE HYDROCHLORIDE
     Indication: PROPHYLAXIS
     Route: 065
     Dates: start: 20130823, end: 20130823
  43. AMLODIPINE BESILATE [Suspect]
     Active Substance: AMLODIPINE BESYLATE
     Indication: HYPERTENSION
     Route: 048
     Dates: start: 20130802, end: 20130803
  44. AMLODIPINE BESILATE [Suspect]
     Active Substance: AMLODIPINE BESYLATE
     Indication: HYPERTENSION
     Route: 048
     Dates: start: 20130731, end: 20130801
  45. ALDACTONE A [Suspect]
     Active Substance: SPIRONOLACTONE
     Indication: RENAL IMPAIRMENT
     Route: 048
     Dates: start: 20130728, end: 20130909
  46. VENILON [Suspect]
     Active Substance: HUMAN IMMUNOGLOBULIN G
     Indication: PROPHYLAXIS
     Route: 065
     Dates: start: 20130718, end: 20130718
  47. TEICOPLANIN [Suspect]
     Active Substance: TEICOPLANIN
     Indication: SEPSIS
     Route: 065
     Dates: start: 20130722, end: 20130823
  48. VFEND [Suspect]
     Active Substance: VORICONAZOLE
     Indication: PROPHYLAXIS
     Route: 048
     Dates: start: 20130830, end: 20130928
  49. BENECID [Suspect]
     Active Substance: PROBENECID
     Indication: RENAL IMPAIRMENT
     Route: 048
     Dates: start: 20130828, end: 20130828
  50. BENECID [Suspect]
     Active Substance: PROBENECID
     Indication: RENAL IMPAIRMENT
     Route: 048
     Dates: start: 20130826, end: 20130826
  51. EVAMYL [Suspect]
     Active Substance: LORMETAZEPAM
     Indication: INSOMNIA
     Route: 048
     Dates: start: 20130717, end: 20130718
  52. TOLVAPTAN [Suspect]
     Active Substance: TOLVAPTAN
     Indication: RENAL IMPAIRMENT
     Dosage: REGIMEN 1
     Route: 048
     Dates: start: 20130820, end: 20130905
  53. LANSOPRAZOLE. [Suspect]
     Active Substance: LANSOPRAZOLE
     Indication: GASTROINTESTINAL DISORDER
     Dosage: REGIMEN 1
     Route: 048
     Dates: start: 20130714, end: 20130729
  54. ROPION [Suspect]
     Active Substance: FLURBIPROFEN AXETIL
     Indication: PROPHYLAXIS
     Route: 065
     Dates: start: 20130818, end: 20130818
  55. ROPION [Suspect]
     Active Substance: FLURBIPROFEN AXETIL
     Indication: PROPHYLAXIS
     Route: 065
     Dates: start: 20130811, end: 20130811
  56. ROPION [Suspect]
     Active Substance: FLURBIPROFEN AXETIL
     Indication: ACUTE LYMPHOCYTIC LEUKAEMIA
     Route: 065
     Dates: start: 20130723, end: 20130724
  57. ZOVIRAX [Suspect]
     Active Substance: ACYCLOVIR
     Indication: PROPHYLAXIS
     Dosage: REGIMEN 1
     Route: 048
     Dates: start: 20130718, end: 20130926
  58. HYDROCORTISONE-NEOMYCIN-POLYMYXIN B [Suspect]
     Active Substance: HYDROCORTISONE\NEOMYCIN\POLYMYXIN B
     Indication: PROPHYLAXIS
     Route: 048
     Dates: start: 20130718, end: 20130810
  59. KAYTWO N [Suspect]
     Active Substance: MENATETRENONE
     Indication: ABNORMAL CLOTTING FACTOR
     Route: 065
     Dates: end: 20130814
  60. PROGRAF [Suspect]
     Active Substance: TACROLIMUS\TACROLIMUS ANHYDROUS
     Indication: PROPHYLAXIS
     Route: 065
     Dates: start: 20130714, end: 20130925
  61. SOLU-MEDROL [Suspect]
     Active Substance: METHYLPREDNISOLONE SODIUM SUCCINATE
     Indication: CAPILLARY LEAK SYNDROME
     Route: 065
     Dates: start: 20130801, end: 20130813
  62. BENAMBAX [Suspect]
     Active Substance: PENTAMIDINE
     Indication: PROPHYLAXIS
     Route: 065
     Dates: start: 20130814, end: 20130814
  63. OMEPRAL [Suspect]
     Active Substance: OMEPRAZOLE
     Indication: GASTROINTESTINAL DISORDER
     Route: 065
     Dates: start: 20130720, end: 20130924
  64. NICARDIPINE HYDROCHLORIDE. [Suspect]
     Active Substance: NICARDIPINE HYDROCHLORIDE
     Indication: HYPERTENSION
     Route: 016
     Dates: start: 20130714, end: 20130719
  65. ENTERONON [Concomitant]
     Active Substance: LACTOBACILLUS ACIDOPHILUS
     Indication: THROMBOTIC MICROANGIOPATHY
     Route: 048
     Dates: start: 20130807, end: 20130810
  66. ENTERONON [Concomitant]
     Active Substance: LACTOBACILLUS ACIDOPHILUS
     Indication: THROMBOTIC MICROANGIOPATHY
     Route: 048
     Dates: start: 20130820, end: 20130926
  67. PREDNISOLONE SODIUM SUCCINATE [Concomitant]
     Active Substance: PREDNISOLONE SODIUM SUCCINATE
     Indication: GRAFT VERSUS HOST DISEASE
     Route: 065
     Dates: start: 20130830, end: 20130904
  68. PREDNISOLONE SODIUM SUCCINATE [Concomitant]
     Active Substance: PREDNISOLONE SODIUM SUCCINATE
     Indication: CAPILLARY LEAK SYNDROME
     Route: 065
     Dates: start: 20130920, end: 20130929
  69. FENTANYL. [Suspect]
     Active Substance: FENTANYL
     Indication: PROPHYLAXIS
     Route: 065
     Dates: start: 20130730, end: 20130823
  70. CIDOFOVIR. [Suspect]
     Active Substance: CIDOFOVIR
     Indication: ADENOVIRUS INFECTION
     Route: 065
     Dates: start: 20130828, end: 20130828
  71. PRECEDEX [Suspect]
     Active Substance: DEXMEDETOMIDINE HYDROCHLORIDE
     Indication: PROPHYLAXIS
     Route: 065
     Dates: start: 20130805, end: 20130808
  72. PRECEDEX [Suspect]
     Active Substance: DEXMEDETOMIDINE HYDROCHLORIDE
     Indication: ACUTE LYMPHOCYTIC LEUKAEMIA
     Route: 065
     Dates: start: 20130805, end: 20130808
  73. VENILON [Suspect]
     Active Substance: HUMAN IMMUNOGLOBULIN G
     Indication: PROPHYLAXIS
     Route: 065
     Dates: start: 20130720, end: 20130721
  74. LASIX [Suspect]
     Active Substance: FUROSEMIDE
     Indication: RENAL IMPAIRMENT
     Route: 065
     Dates: end: 20130910
  75. LIDOCAINE HYDROCHLORIDE. [Suspect]
     Active Substance: LIDOCAINE HYDROCHLORIDE
     Indication: NEUROPATHY PERIPHERAL
     Route: 065
     Dates: start: 20130731, end: 20130819
  76. VFEND [Suspect]
     Active Substance: VORICONAZOLE
     Indication: PROPHYLAXIS
     Route: 048
     Dates: start: 20130828, end: 20130829
  77. ROPION [Suspect]
     Active Substance: FLURBIPROFEN AXETIL
     Indication: ACUTE LYMPHOCYTIC LEUKAEMIA
     Route: 065
     Dates: start: 20130818, end: 20130818
  78. ROPION [Suspect]
     Active Substance: FLURBIPROFEN AXETIL
     Indication: ACUTE LYMPHOCYTIC LEUKAEMIA
     Route: 065
     Dates: start: 20130808, end: 20130809
  79. NEUTROGIN [Suspect]
     Active Substance: LENOGRASTIM
     Indication: PROPHYLAXIS
     Route: 065
     Dates: start: 20130806, end: 20130808
  80. NEUTROGIN [Suspect]
     Active Substance: LENOGRASTIM
     Indication: PROPHYLAXIS
     Route: 065
     Dates: start: 20130715, end: 20130803
  81. PANAX GINSENG [Suspect]
     Active Substance: ASIAN GINSENG
     Indication: ILEUS PARALYTIC
     Route: 048
     Dates: start: 20130803, end: 20130804
  82. ONDANSETRON [Suspect]
     Active Substance: ONDANSETRON
     Indication: PROPHYLAXIS
     Route: 016
     Dates: start: 20130716, end: 20130716
  83. DALTEPARIN SODIUM [Suspect]
     Active Substance: DALTEPARIN SODIUM
     Indication: PROPHYLAXIS
     Route: 065
     Dates: start: 20130714, end: 20130729
  84. ZOSYN [Suspect]
     Active Substance: PIPERACILLIN SODIUM\TAZOBACTAM SODIUM
     Indication: SEPSIS
     Route: 065
     Dates: start: 20130714, end: 20130715
  85. DORMICUM [Suspect]
     Active Substance: MIDAZOLAM\MIDAZOLAM HYDROCHLORIDE
     Indication: PROPHYLAXIS
     Route: 065
     Dates: start: 20130820, end: 20130823
  86. MEROPENEM. [Suspect]
     Active Substance: MEROPENEM
     Indication: SEPSIS
     Route: 016
     Dates: start: 20130715, end: 20130728
  87. SERENACE [Concomitant]
     Active Substance: HALOPERIDOL
     Indication: ACUTE LYMPHOCYTIC LEUKAEMIA
     Route: 065
     Dates: start: 20130808, end: 20130808
  88. PREDNISOLONE SODIUM SUCCINATE [Concomitant]
     Active Substance: PREDNISOLONE SODIUM SUCCINATE
     Indication: GRAFT VERSUS HOST DISEASE
     Route: 065
     Dates: start: 20130905, end: 20130912
  89. PREDNISOLONE SODIUM SUCCINATE [Concomitant]
     Active Substance: PREDNISOLONE SODIUM SUCCINATE
     Indication: CAPILLARY LEAK SYNDROME
     Route: 065
     Dates: start: 20130820, end: 20130829
  90. CIDOFOVIR. [Suspect]
     Active Substance: CIDOFOVIR
     Indication: ADENOVIRUS INFECTION
     Route: 065
     Dates: start: 20130824, end: 20130824
  91. HANP [Suspect]
     Active Substance: CARPERITIDE
     Indication: HYPERTENSION
     Route: 065
     Dates: start: 20130818, end: 20130916
  92. AMLODIPINE BESILATE [Suspect]
     Active Substance: AMLODIPINE BESYLATE
     Indication: HYPERTENSION
     Route: 048
     Dates: start: 20130804, end: 20130805
  93. AMLODIPINE BESILATE [Suspect]
     Active Substance: AMLODIPINE BESYLATE
     Indication: HYPERTENSION
     Route: 048
     Dates: start: 20130714, end: 20130717
  94. ALDACTONE A [Suspect]
     Active Substance: SPIRONOLACTONE
     Indication: RENAL IMPAIRMENT
     Route: 048
     Dates: start: 20130820, end: 20130827
  95. VENILON [Suspect]
     Active Substance: HUMAN IMMUNOGLOBULIN G
     Indication: PROPHYLAXIS
     Route: 065
     Dates: start: 20130725, end: 20130725
  96. TEICOPLANIN [Suspect]
     Active Substance: TEICOPLANIN
     Indication: PROPHYLAXIS
     Route: 065
     Dates: start: 20130722, end: 20130823
  97. LASIX [Suspect]
     Active Substance: FUROSEMIDE
     Indication: GENERALISED OEDEMA
     Route: 065
     Dates: start: 20130714
  98. ALBUMIN HUMAN [Suspect]
     Active Substance: ALBUMIN (HUMAN)
     Indication: HYPOALBUMINAEMIA
     Route: 065
     Dates: start: 20130714, end: 20130715
  99. ANTHROBIN P [Suspect]
     Active Substance: ANTITHROMBIN III HUMAN
     Indication: ABNORMAL CLOTTING FACTOR
     Route: 065
     Dates: start: 20130805, end: 20130805
  100. ANTHROBIN P [Suspect]
     Active Substance: ANTITHROMBIN III HUMAN
     Indication: ABNORMAL CLOTTING FACTOR
     Route: 065
     Dates: start: 20130811, end: 20130812
  101. INSULIN HUMAN [Suspect]
     Active Substance: INSULIN HUMAN
     Indication: HYPERGLYCAEMIA
     Route: 065
     Dates: start: 20130730, end: 20130913
  102. ROPION [Suspect]
     Active Substance: FLURBIPROFEN AXETIL
     Indication: ACUTE LYMPHOCYTIC LEUKAEMIA
     Route: 065
     Dates: start: 20130811, end: 20130811
  103. SOLU-MEDROL [Suspect]
     Active Substance: METHYLPREDNISOLONE SODIUM SUCCINATE
     Indication: CAPILLARY LEAK SYNDROME
     Route: 065
     Dates: start: 20130731, end: 20130731
  104. ZOSYN [Suspect]
     Active Substance: PIPERACILLIN SODIUM\TAZOBACTAM SODIUM
     Indication: SEPSIS
     Route: 065
     Dates: end: 20130925
  105. PRIMPERAN [Concomitant]
     Active Substance: METOCLOPRAMIDE HYDROCHLORIDE
     Indication: ILEUS PARALYTIC
     Route: 065
     Dates: start: 20130808, end: 20130809
  106. ATARAX-P [Concomitant]
     Active Substance: HYDROXYZINE HYDROCHLORIDE
     Indication: ACUTE LYMPHOCYTIC LEUKAEMIA
     Route: 065
     Dates: start: 20130813, end: 20130813
  107. PREDNISOLONE SODIUM SUCCINATE [Concomitant]
     Active Substance: PREDNISOLONE SODIUM SUCCINATE
     Indication: CAPILLARY LEAK SYNDROME
     Route: 065
     Dates: start: 20130905, end: 20130912
  108. PREDNISOLONE SODIUM SUCCINATE [Concomitant]
     Active Substance: PREDNISOLONE SODIUM SUCCINATE
     Indication: CAPILLARY LEAK SYNDROME
     Route: 065
     Dates: start: 20130913, end: 20130918
  109. PREDNISOLONE SODIUM SUCCINATE [Concomitant]
     Active Substance: PREDNISOLONE SODIUM SUCCINATE
     Indication: CAPILLARY LEAK SYNDROME
     Route: 065
     Dates: start: 20130830, end: 20130904
  110. MUCODYNE [Suspect]
     Active Substance: CARBOCYSTEINE
     Indication: PNEUMONIA
     Dosage: REGIMEN 1
     Route: 048
     Dates: start: 20130714, end: 20130729
  111. PREDOHAN [Suspect]
     Active Substance: PREDNISOLONE
     Indication: PRODUCT USED FOR UNKNOWN INDICATION
     Route: 048
  112. ALBUMIN HUMAN [Suspect]
     Active Substance: ALBUMIN (HUMAN)
     Indication: CAPILLARY LEAK SYNDROME
     Route: 065
     Dates: start: 20130717, end: 20130821
  113. ANTHROBIN P [Suspect]
     Active Substance: ANTITHROMBIN III HUMAN
     Indication: ABNORMAL CLOTTING FACTOR
     Route: 065
     Dates: start: 20130724, end: 20130724
  114. LASIX [Suspect]
     Active Substance: FUROSEMIDE
     Indication: RENAL IMPAIRMENT
     Dosage: REGIMEN 1
     Route: 048
     Dates: start: 20130821
  115. TEICOPLANIN [Suspect]
     Active Substance: TEICOPLANIN
     Indication: SEPSIS
     Dosage: REGIMEN 1
     Route: 016
     Dates: start: 20130717, end: 20130719
  116. FUNGUARD [Suspect]
     Active Substance: MICAFUNGIN SODIUM
     Indication: SEPSIS
     Route: 065
     Dates: start: 20130730, end: 20130821
  117. ONDANSETRON [Suspect]
     Active Substance: ONDANSETRON
     Indication: PROPHYLAXIS
     Route: 016
     Dates: start: 20130720, end: 20130721
  118. SOLU-MEDROL [Suspect]
     Active Substance: METHYLPREDNISOLONE SODIUM SUCCINATE
     Indication: GRAFT VERSUS HOST DISEASE
     Route: 065
     Dates: start: 20130801, end: 20130813
  119. CHLOR-TRIMETON [Suspect]
     Active Substance: CHLORPHENIRAMINE MALEATE
     Indication: PROPHYLAXIS
     Route: 065
     Dates: start: 20130814, end: 20130814
  120. CHLOR-TRIMETON [Suspect]
     Active Substance: CHLORPHENIRAMINE MALEATE
     Indication: PROPHYLAXIS
     Route: 065
     Dates: start: 20130825, end: 20130825
  121. CHLOR-TRIMETON [Suspect]
     Active Substance: CHLORPHENIRAMINE MALEATE
     Indication: PROPHYLAXIS
     Route: 065
     Dates: start: 20130810, end: 20130811
  122. CHLOR-TRIMETON [Suspect]
     Active Substance: CHLORPHENIRAMINE MALEATE
     Indication: PROPHYLAXIS
     Route: 065
     Dates: start: 20130722, end: 20130727
  123. GANCICLOVIR. [Concomitant]
     Active Substance: GANCICLOVIR
     Indication: CYTOMEGALOVIRUS VIRAEMIA
     Route: 065
     Dates: start: 20130821, end: 20130824
  124. GANCICLOVIR. [Concomitant]
     Active Substance: GANCICLOVIR
     Indication: CYTOMEGALOVIRUS VIRAEMIA
     Route: 065
     Dates: start: 20130826, end: 20130904
  125. ATARAX-P [Concomitant]
     Active Substance: HYDROXYZINE HYDROCHLORIDE
     Indication: ACUTE LYMPHOCYTIC LEUKAEMIA
     Route: 065
     Dates: start: 20130808, end: 20130808
  126. PREDNISOLONE SODIUM SUCCINATE [Concomitant]
     Active Substance: PREDNISOLONE SODIUM SUCCINATE
     Indication: GRAFT VERSUS HOST DISEASE
     Route: 065
     Dates: start: 20130919, end: 20130919
  127. CIDOFOVIR. [Suspect]
     Active Substance: CIDOFOVIR
     Indication: ADENOVIRUS INFECTION
     Route: 065
     Dates: start: 20130826, end: 20130826
  128. CIDOFOVIR. [Suspect]
     Active Substance: CIDOFOVIR
     Indication: ADENOVIRUS INFECTION
     Route: 065
     Dates: start: 20130822, end: 20130822
  129. POTASSIUM CANRENOATE [Suspect]
     Active Substance: CANRENOATE POTASSIUM
     Indication: RENAL IMPAIRMENT
     Dosage: REGIMEN 1
     Route: 065
     Dates: start: 20130820, end: 20130820
  130. TRYPTANOL [Suspect]
     Active Substance: AMITRIPTYLINE
     Indication: NEUROPATHY PERIPHERAL
     Route: 048
     Dates: start: 20130726, end: 20130729
  131. LYRICA [Suspect]
     Active Substance: PREGABALIN
     Indication: NEUROPATHY PERIPHERAL
     Route: 048
     Dates: start: 20130714, end: 20130729
  132. LYRICA [Suspect]
     Active Substance: PREGABALIN
     Indication: NEUROPATHY PERIPHERAL
     Route: 048
  133. VENILON [Suspect]
     Active Substance: HUMAN IMMUNOGLOBULIN G
     Indication: PROPHYLAXIS
     Route: 065
     Dates: start: 20130815, end: 20130815
  134. VENILON [Suspect]
     Active Substance: HUMAN IMMUNOGLOBULIN G
     Indication: PROPHYLAXIS
     Route: 065
     Dates: start: 20130802, end: 20130802
  135. NICARDIPINE HYDROCHLORIDE. [Suspect]
     Active Substance: NICARDIPINE HYDROCHLORIDE
     Indication: HYPERTENSION
     Route: 016
     Dates: start: 20130803, end: 20130913
  136. LASIX [Suspect]
     Active Substance: FUROSEMIDE
     Indication: GENERALISED OEDEMA
     Route: 065
     Dates: start: 20130821, end: 20130825
  137. LASIX [Suspect]
     Active Substance: FUROSEMIDE
     Indication: GENERALISED OEDEMA
     Route: 065
     Dates: end: 20130910
  138. LIDOCAINE HYDROCHLORIDE. [Suspect]
     Active Substance: LIDOCAINE HYDROCHLORIDE
     Indication: NEUROPATHY PERIPHERAL
     Route: 065
     Dates: start: 20130714, end: 20130729
  139. ALBUMIN HUMAN [Suspect]
     Active Substance: ALBUMIN (HUMAN)
     Indication: GENERALISED OEDEMA
     Route: 065
     Dates: start: 20130714, end: 20130715
  140. ALBUMIN HUMAN [Suspect]
     Active Substance: ALBUMIN (HUMAN)
     Indication: HYPOALBUMINAEMIA
     Route: 065
     Dates: start: 20130717, end: 20130821
  141. ANTHROBIN P [Suspect]
     Active Substance: ANTITHROMBIN III HUMAN
     Indication: ABNORMAL CLOTTING FACTOR
     Route: 065
     Dates: start: 20130728, end: 20130729
  142. ROPION [Suspect]
     Active Substance: FLURBIPROFEN AXETIL
     Indication: PROPHYLAXIS
     Route: 065
     Dates: start: 20130824, end: 20130824
  143. ROPION [Suspect]
     Active Substance: FLURBIPROFEN AXETIL
     Indication: PROPHYLAXIS
     Route: 065
     Dates: start: 20130723, end: 20130724
  144. ROPION [Suspect]
     Active Substance: FLURBIPROFEN AXETIL
     Indication: ACUTE LYMPHOCYTIC LEUKAEMIA
     Route: 065
     Dates: start: 20130824, end: 20130824
  145. CALCICOL [Suspect]
     Active Substance: CALCIUM GLUCONATE
     Indication: HYPOCALCAEMIA
     Route: 065
     Dates: start: 20130714, end: 20130716
  146. KAYTWO N [Suspect]
     Active Substance: MENATETRENONE
     Indication: ABNORMAL CLOTTING FACTOR
     Route: 065
     Dates: start: 20130728, end: 20130728
  147. TEICOPLANIN [Suspect]
     Active Substance: TEICOPLANIN
     Indication: PROPHYLAXIS
     Route: 016
     Dates: end: 20130823
  148. PROGRAF [Suspect]
     Active Substance: TACROLIMUS\TACROLIMUS ANHYDROUS
     Indication: GRAFT VERSUS HOST DISEASE
     Route: 065
     Dates: start: 20130714, end: 20130925
  149. CHLOR-TRIMETON [Suspect]
     Active Substance: CHLORPHENIRAMINE MALEATE
     Indication: PROPHYLAXIS
     Route: 065
     Dates: start: 20130827, end: 20130829
  150. CHLOR-TRIMETON [Suspect]
     Active Substance: CHLORPHENIRAMINE MALEATE
     Indication: PROPHYLAXIS
     Route: 065
     Dates: end: 20130904
  151. CHLOR-TRIMETON [Suspect]
     Active Substance: CHLORPHENIRAMINE MALEATE
     Indication: PROPHYLAXIS
     Route: 065
     Dates: start: 20130729, end: 20130729
  152. PREDNISOLONE SODIUM SUCCINATE [Concomitant]
     Active Substance: PREDNISOLONE SODIUM SUCCINATE
     Indication: GRAFT VERSUS HOST DISEASE
     Route: 065
     Dates: start: 20130913, end: 20130918
  153. PREDNISOLONE SODIUM SUCCINATE [Concomitant]
     Active Substance: PREDNISOLONE SODIUM SUCCINATE
     Indication: GRAFT VERSUS HOST DISEASE
     Route: 065
     Dates: start: 20130814, end: 20130819
  154. URSO [Suspect]
     Active Substance: URSODIOL
     Indication: PROPHYLAXIS
     Dosage: REGIMEN 1
     Route: 048
     Dates: start: 20130718, end: 20130926
  155. HANP [Suspect]
     Active Substance: CARPERITIDE
     Indication: HYPERTENSION
     Route: 065
     Dates: start: 20130730, end: 20130802
  156. PRECEDEX [Suspect]
     Active Substance: DEXMEDETOMIDINE HYDROCHLORIDE
     Indication: ACUTE LYMPHOCYTIC LEUKAEMIA
     Route: 065
     Dates: start: 20130823, end: 20130823
  157. AMLODIPINE BESILATE [Suspect]
     Active Substance: AMLODIPINE BESYLATE
     Indication: HYPERTENSION
     Route: 048
     Dates: start: 20130806, end: 20130810
  158. TRYPTANOL [Suspect]
     Active Substance: AMITRIPTYLINE
     Indication: NEUROPATHY PERIPHERAL
     Route: 048
     Dates: start: 20130714, end: 20130725
  159. VENILON [Suspect]
     Active Substance: HUMAN IMMUNOGLOBULIN G
     Indication: PROPHYLAXIS
     Route: 065
     Dates: start: 20130829, end: 20130829
  160. VENILON [Suspect]
     Active Substance: HUMAN IMMUNOGLOBULIN G
     Indication: PROPHYLAXIS
     Route: 065
     Dates: end: 20130926
  161. LASIX [Suspect]
     Active Substance: FUROSEMIDE
     Indication: RENAL IMPAIRMENT
     Route: 065
     Dates: start: 20130714
  162. VFEND [Suspect]
     Active Substance: VORICONAZOLE
     Indication: PROPHYLAXIS
     Route: 065
     Dates: start: 20130830, end: 20130928
  163. ALBUMIN HUMAN [Suspect]
     Active Substance: ALBUMIN (HUMAN)
     Indication: GENERALISED OEDEMA
     Route: 065
     Dates: start: 20130717, end: 20130821
  164. ANTHROBIN P [Suspect]
     Active Substance: ANTITHROMBIN III HUMAN
     Indication: ABNORMAL CLOTTING FACTOR
     Route: 065
     Dates: start: 20130726, end: 20130726
  165. ANTHROBIN P [Suspect]
     Active Substance: ANTITHROMBIN III HUMAN
     Indication: ABNORMAL CLOTTING FACTOR
     Route: 065
     Dates: start: 20130719, end: 20130721
  166. BENECID [Suspect]
     Active Substance: PROBENECID
     Indication: RENAL IMPAIRMENT
     Route: 048
     Dates: start: 20130830, end: 20130930
  167. BENECID [Suspect]
     Active Substance: PROBENECID
     Indication: RENAL IMPAIRMENT
     Route: 048
  168. BENECID [Suspect]
     Active Substance: PROBENECID
     Indication: RENAL IMPAIRMENT
     Route: 048
     Dates: start: 20130820, end: 20130824
  169. ROPION [Suspect]
     Active Substance: FLURBIPROFEN AXETIL
     Indication: ACUTE LYMPHOCYTIC LEUKAEMIA
     Route: 065
     Dates: start: 20130716, end: 20130717
  170. PROGRAF [Suspect]
     Active Substance: TACROLIMUS\TACROLIMUS ANHYDROUS
     Indication: GRAFT VERSUS HOST DISEASE
     Route: 048
     Dates: start: 20130714, end: 20130925
  171. NEUTROGIN [Suspect]
     Active Substance: LENOGRASTIM
     Indication: PROPHYLAXIS
     Route: 065
     Dates: start: 20130804, end: 20130805
  172. WYPAX [Suspect]
     Active Substance: LORAZEPAM
     Indication: PRODUCT USED FOR UNKNOWN INDICATION
     Route: 048
     Dates: start: 20130830, end: 20130902
  173. SOLU-MEDROL [Suspect]
     Active Substance: METHYLPREDNISOLONE SODIUM SUCCINATE
     Indication: GRAFT VERSUS HOST DISEASE
     Route: 065
     Dates: start: 20130729, end: 20130729
  174. DORMICUM [Suspect]
     Active Substance: MIDAZOLAM\MIDAZOLAM HYDROCHLORIDE
     Indication: PROPHYLAXIS
     Route: 065
     Dates: start: 20130730, end: 20130807
  175. DORMICUM [Suspect]
     Active Substance: MIDAZOLAM\MIDAZOLAM HYDROCHLORIDE
     Indication: ACUTE LYMPHOCYTIC LEUKAEMIA
     Route: 065
     Dates: start: 20130820, end: 20130823
  176. GANCICLOVIR. [Concomitant]
     Active Substance: GANCICLOVIR
     Indication: CYTOMEGALOVIRUS VIRAEMIA
     Route: 065
     Dates: start: 20130820, end: 20130820
  177. ATARAX-P [Concomitant]
     Active Substance: HYDROXYZINE HYDROCHLORIDE
     Indication: ACUTE LYMPHOCYTIC LEUKAEMIA
     Route: 065
     Dates: end: 20130925
  178. PREDNISOLONE SODIUM SUCCINATE [Concomitant]
     Active Substance: PREDNISOLONE SODIUM SUCCINATE
     Indication: GRAFT VERSUS HOST DISEASE
     Route: 065
  179. PREDNISOLONE SODIUM SUCCINATE [Concomitant]
     Active Substance: PREDNISOLONE SODIUM SUCCINATE
     Indication: GRAFT VERSUS HOST DISEASE
     Route: 065
     Dates: start: 20130820, end: 20130829
  180. PREDNISOLONE SODIUM SUCCINATE [Concomitant]
     Active Substance: PREDNISOLONE SODIUM SUCCINATE
     Indication: CAPILLARY LEAK SYNDROME
     Route: 065
  181. FINIBAX [Suspect]
     Active Substance: DORIPENEM MONOHYDRATE
     Indication: SEPSIS
     Dosage: 1 GRAM 3 TIMES DAILY
     Route: 041
     Dates: start: 20130728, end: 20130830
  182. CIDOFOVIR. [Suspect]
     Active Substance: CIDOFOVIR
     Indication: ADENOVIRUS INFECTION
     Route: 065
     Dates: start: 20130830, end: 20130830
  183. CIDOFOVIR. [Suspect]
     Active Substance: CIDOFOVIR
     Indication: ADENOVIRUS INFECTION
     Route: 065
     Dates: start: 20130820, end: 20130820
  184. ROCURONIUM BROMIDE. [Suspect]
     Active Substance: ROCURONIUM BROMIDE
     Indication: ACUTE LYMPHOCYTIC LEUKAEMIA
     Dosage: REGIMEN 1
     Route: 065
     Dates: start: 20130801, end: 20130801

REACTIONS (10)
  - Hepatic function abnormal [Recovered/Resolved]
  - Graft versus host disease [Recovering/Resolving]
  - Ileus paralytic [Recovered/Resolved]
  - Adenovirus infection [Recovering/Resolving]
  - Diarrhoea [Recovering/Resolving]
  - Cytomegalovirus test positive [Recovering/Resolving]
  - Hyperglycaemia [Not Recovered/Not Resolved]
  - Thrombotic microangiopathy [Not Recovered/Not Resolved]
  - Pneumothorax [Recovered/Resolved]
  - Respiratory disorder [Recovering/Resolving]

NARRATIVE: CASE EVENT DATE: 20130729
